FAERS Safety Report 6376453-9 (Version None)
Quarter: 2009Q3

REPORT INFORMATION
  Report Type: 
  Country: None (occurrence: None)
  Receive Date: 20090922
  Receipt Date: 20090922
  Transmission Date: 20100115
  Serious: Yes (Life-Threatening)
  Sender: FDA-Public Use
  Company Number: None

PATIENT
  Sex: Female

DRUGS (8)
  1. OMNIPAQUE 300 [Suspect]
     Indication: IMAGING PROCEDURE
     Dosage: 125ML OTO IV
     Route: 042
     Dates: start: 20090918
  2. COLACE [Concomitant]
  3. SOTALOL [Concomitant]
  4. CLARITIN [Concomitant]
  5. HYDROCHLOROTHIAZIDE [Concomitant]
  6. SYNTHROID [Concomitant]
  7. M.V.I. [Concomitant]
  8. OMEPRAZOLE [Concomitant]

REACTIONS (4)
  - ANAPHYLACTIC REACTION [None]
  - GAZE PALSY [None]
  - MOVEMENT DISORDER [None]
  - RESPIRATORY DISTRESS [None]
